FAERS Safety Report 10037406 (Version 1)
Quarter: 2014Q1

REPORT INFORMATION
  Report Type: Spontaneous
  Country: US (occurrence: None)
  Receive Date: 20140325
  Receipt Date: 20140325
  Transmission Date: 20141002
  Serious: Yes (Other)
  Sender: FDA-Public Use
  Company Number: None

PATIENT
  Age: 37 Year
  Sex: Female
  Weight: 65 kg

DRUGS (1)
  1. MIRENA [Suspect]

REACTIONS (11)
  - Paraesthesia [None]
  - Hypoaesthesia [None]
  - Anxiety [None]
  - Tremor [None]
  - Fatigue [None]
  - Arthralgia [None]
  - Chest pain [None]
  - Headache [None]
  - Vitreous floaters [None]
  - Feeling abnormal [None]
  - Tinnitus [None]
